FAERS Safety Report 17814268 (Version 2)
Quarter: 2020Q2

REPORT INFORMATION
  Report Type: Spontaneous
  Country: US (occurrence: US)
  Receive Date: 20200521
  Receipt Date: 20200529
  Transmission Date: 20200714
  Serious: Yes (Hospitalization, Other)
  Sender: FDA-Public Use
  Company Number: US-ALEXION PHARMACEUTICALS INC.-A202007089

PATIENT
  Sex: Male

DRUGS (1)
  1. SOLIRIS [Suspect]
     Active Substance: ECULIZUMAB
     Indication: PRODUCT USED FOR UNKNOWN INDICATION
     Dosage: UNK
     Route: 065

REACTIONS (11)
  - Myasthenia gravis [Unknown]
  - Poor quality sleep [Unknown]
  - Myasthenia gravis crisis [Unknown]
  - Therapy non-responder [Unknown]
  - Condition aggravated [Unknown]
  - General physical health deterioration [Unknown]
  - Mental fatigue [Unknown]
  - Muscular weakness [Unknown]
  - Tongue movement disturbance [Unknown]
  - Dysphagia [Unknown]
  - Emotional distress [Unknown]
